FAERS Safety Report 4603973-7 (Version None)
Quarter: 2005Q1

REPORT INFORMATION
  Report Type: 
  Country: None (occurrence: None)
  Receive Date: 20050308
  Receipt Date: 20050218
  Transmission Date: 20050727
  Serious: Yes (Hospitalization)
  Sender: FDA-Public Use
  Company Number: ENTC2005-0057

PATIENT
  Age: 71 Year
  Sex: Female

DRUGS (5)
  1. STALEVO 100 [Suspect]
     Indication: PARKINSON'S DISEASE
     Dosage: 50MG/12.5MG/200MG QID, ORAL
     Route: 048
     Dates: start: 20040901
  2. SINEMET [Suspect]
     Dosage: 100MG QID, ORAL
     Route: 048
     Dates: start: 20050106
  3. DULCOLAX [Concomitant]
  4. MIRALAX [Concomitant]
  5. MAGNESIUM CITRATE [Concomitant]

REACTIONS (4)
  - CONSTIPATION [None]
  - DIARRHOEA [None]
  - FAECALOMA [None]
  - THERAPY NON-RESPONDER [None]
